FAERS Safety Report 9172170 (Version 1)
Quarter: 2013Q1

REPORT INFORMATION
  Report Type: Spontaneous
  Country: GB (occurrence: GB)
  Receive Date: 20130319
  Receipt Date: 20130319
  Transmission Date: 20140127
  Serious: Yes (Hospitalization, Other)
  Sender: FDA-Public Use
  Company Number: GB-PFIZER INC-2013087059

PATIENT
  Age: 35 Year
  Sex: Male
  Weight: 96 kg

DRUGS (2)
  1. SERTRALINE HCL [Suspect]
     Indication: DEPRESSION
     Route: 048
     Dates: start: 20130226, end: 20130301
  2. COLCHICINE [Concomitant]

REACTIONS (9)
  - Angina pectoris [Recovered/Resolved with Sequelae]
  - Muscle contractions involuntary [Recovering/Resolving]
  - Insomnia [Recovered/Resolved]
  - Urine output decreased [Recovered/Resolved]
  - Myalgia [Recovered/Resolved]
  - Hyperhidrosis [Unknown]
  - Malaise [Unknown]
  - Pain in extremity [Recovered/Resolved]
  - Electrocardiogram ST segment elevation [Unknown]
